FAERS Safety Report 4530874-5 (Version None)
Quarter: 2004Q4

REPORT INFORMATION
  Report Type: 
  Country: None (occurrence: None)
  Receive Date: 20041206
  Receipt Date: 20040909
  Transmission Date: 20050328
  Serious: No
  Sender: FDA-Public Use
  Company Number: USA040977787

PATIENT
  Age: 51 Year
  Sex: Male
  Weight: 95 kg

DRUGS (7)
  1. CYMBALTA [Suspect]
     Indication: DEPRESSION
     Dosage: 30 MG/1 DAY
     Dates: start: 20040908
  2. FLUOXETINE [Suspect]
     Indication: DEPRESSION
  3. VALIUM [Concomitant]
  4. OXYCODONE HCL [Concomitant]
  5. RANITIDINE [Concomitant]
  6. ASPIRIN [Concomitant]
  7. MULTIVITAMINS NOS (MULTIVITAMINS NOS) [Concomitant]

REACTIONS (4)
  - ANXIETY [None]
  - INSOMNIA [None]
  - NAUSEA [None]
  - RESTLESSNESS [None]
